APPROVED DRUG PRODUCT: ULTIVA
Active Ingredient: REMIFENTANIL HYDROCHLORIDE
Strength: EQ 5MG BASE/VIAL
Dosage Form/Route: INJECTABLE;INJECTION
Application: N020630 | Product #003 | TE Code: AP
Applicant: MYLAN INSTITUTIONAL LLC
Approved: Jul 12, 1996 | RLD: Yes | RS: Yes | Type: RX